FAERS Safety Report 16260739 (Version 1)
Quarter: 2019Q2

REPORT INFORMATION
  Report Type: Spontaneous
  Country: US (occurrence: US)
  Receive Date: 20190501
  Receipt Date: 20190501
  Transmission Date: 20190711
  Serious: Yes (Other)
  Sender: FDA-Public Use
  Company Number: PHHY2019US096220

PATIENT

DRUGS (1)
  1. AMIODARONE [Suspect]
     Active Substance: AMIODARONE
     Indication: EXPOSURE VIA BREAST MILK
     Route: 063

REACTIONS (2)
  - Thyroid disorder [Unknown]
  - Exposure via breast milk [Unknown]
